FAERS Safety Report 23857658 (Version 1)
Quarter: 2024Q2

REPORT INFORMATION
  Report Type: Spontaneous
  Country: CN (occurrence: CN)
  Receive Date: 20240515
  Receipt Date: 20240515
  Transmission Date: 20240716
  Serious: Yes (Other)
  Sender: FDA-Public Use
  Company Number: None

PATIENT
  Age: 50 Year
  Sex: Female
  Weight: 60 kg

DRUGS (6)
  1. CYCLOPHOSPHAMIDE [Suspect]
     Active Substance: CYCLOPHOSPHAMIDE
     Indication: Breast cancer female
     Dosage: 0.8 G, ONE TIME IN ONE DAY, D1, DILUTED WITH 100 ML OF 0.9% SODIUM CHLORIDE, AS APART OF FIRST TEC R
     Route: 041
     Dates: start: 20240325, end: 20240325
  2. SODIUM CHLORIDE [Suspect]
     Active Substance: SODIUM CHLORIDE
     Indication: Medication dilution
     Dosage: 100 ML, ONE TIME IN ONE DAY, D1, USED TO DILUTE 0.8 G OF CYCLOPHOSPHAMIDE
     Route: 041
     Dates: start: 20240325, end: 20240325
  3. SODIUM CHLORIDE [Suspect]
     Active Substance: SODIUM CHLORIDE
     Dosage: 250 ML, ONE TIME IN ONE DAY, D1, USED TO DILUTE 120MG OF EPIRUBICIN HYDROCHLORIDE
     Route: 041
     Dates: start: 20240325, end: 20240325
  4. SODIUM CHLORIDE [Suspect]
     Active Substance: SODIUM CHLORIDE
     Dosage: 250 ML, ONE TIME IN ONE DAY, D2, USED TO DILUTE 120 MG OF DOCETAXEL
     Route: 041
     Dates: start: 20240326, end: 20240326
  5. EPIRUBICIN HYDROCHLORIDE [Suspect]
     Active Substance: EPIRUBICIN HYDROCHLORIDE
     Indication: Breast cancer female
     Dosage: 120 MG, ONE TIME IN ONE DAY, D1, DILUTED WITH 250 ML OF 0.9% SODIUM CHLORIDE, AS APART OF FIRST TEC
     Route: 041
     Dates: start: 20240325, end: 20240325
  6. DOCETAXEL [Suspect]
     Active Substance: DOCETAXEL\DOCETAXEL ANHYDROUS
     Indication: Breast cancer female
     Dosage: 120 MG, ONE TIME IN ONE DAY, D2, DILUTED WITH 250 ML OF 0.9% SODIUM CHLORIDE, AS APART OF FIRST TEC
     Route: 041
     Dates: start: 20240326, end: 20240326

REACTIONS (1)
  - Myelosuppression [Recovering/Resolving]

NARRATIVE: CASE EVENT DATE: 20240415
